FAERS Safety Report 21371317 (Version 1)
Quarter: 2022Q3

REPORT INFORMATION
  Report Type: Spontaneous
  Country: VN (occurrence: VN)
  Receive Date: 20220923
  Receipt Date: 20220923
  Transmission Date: 20221027
  Serious: Yes (Other)
  Sender: FDA-Public Use
  Company Number: VN-ELI_LILLY_AND_COMPANY-VN202209006930

PATIENT
  Age: 61 Year
  Sex: Male

DRUGS (7)
  1. ALIMTA [Suspect]
     Active Substance: PEMETREXED DISODIUM
     Indication: Non-small cell lung cancer
     Dosage: UNK UNK, UNKNOWN
     Route: 065
     Dates: start: 2020, end: 202202
  2. CARBOPLATIN [Suspect]
     Active Substance: CARBOPLATIN
     Indication: Non-small cell lung cancer
     Dosage: UNK UNK, UNKNOWN
     Route: 065
     Dates: start: 2020
  3. BEVACIZUMAB [Suspect]
     Active Substance: BEVACIZUMAB
     Indication: Non-small cell lung cancer
     Dosage: UNK UNK, UNKNOWN
     Route: 065
     Dates: start: 2020, end: 202202
  4. RIFAMPIN [Concomitant]
     Active Substance: RIFAMPIN
     Indication: Tuberculosis
  5. ISONIAZID [Concomitant]
     Active Substance: ISONIAZID
     Indication: Tuberculosis
  6. PYRAZINAMIDE [Concomitant]
     Active Substance: PYRAZINAMIDE
     Indication: Tuberculosis
  7. STREPTOMYCIN [Concomitant]
     Active Substance: STREPTOMYCIN SULFATE
     Indication: Tuberculosis

REACTIONS (4)
  - Gastric haemorrhage [Unknown]
  - Malignant neoplasm progression [Recovering/Resolving]
  - Spinal compression fracture [Unknown]
  - Arthritis [Unknown]

NARRATIVE: CASE EVENT DATE: 20201123
